FAERS Safety Report 13648917 (Version 2)
Quarter: 2017Q3

REPORT INFORMATION
  Report Type: Spontaneous
  Country: FR (occurrence: FR)
  Receive Date: 20170613
  Receipt Date: 20170706
  Transmission Date: 20171127
  Serious: Yes (Hospitalization, Other)
  Sender: FDA-Public Use
  Company Number: FR-PFIZER INC-2017248619

PATIENT
  Age: 43 Year
  Sex: Male
  Weight: 73 kg

DRUGS (6)
  1. DALACINE [Suspect]
     Active Substance: CLINDAMYCIN HYDROCHLORIDE
     Indication: TOXOPLASMOSIS
     Dosage: 300 MG, 4X/DAY
     Route: 048
     Dates: start: 20170421, end: 20170502
  2. TIVICAY [Concomitant]
     Active Substance: DOLUTEGRAVIR SODIUM
     Indication: HIV INFECTION
     Dosage: UNK
  3. DALACINE [Suspect]
     Active Substance: CLINDAMYCIN HYDROCHLORIDE
     Indication: TOXOPLASMOSIS
     Dosage: 600 MG, 3X/DAY
     Route: 042
     Dates: start: 20170411, end: 20170421
  4. DALACINE [Suspect]
     Active Substance: CLINDAMYCIN HYDROCHLORIDE
     Dosage: 600 MG, 3X/DAY
     Route: 048
     Dates: start: 20170502, end: 20170505
  5. TRUVADA [Concomitant]
     Active Substance: EMTRICITABINE\TENOFOVIR DISOPROXIL FUMARATE
     Indication: HIV INFECTION
     Dosage: UNK
     Dates: start: 20170330
  6. MALOCIDE [Concomitant]
     Active Substance: PYRIMETHAMINE
     Indication: TOXOPLASMOSIS
     Dosage: UNK
     Dates: start: 20170324, end: 20170505

REACTIONS (2)
  - Oesophagitis ulcerative [Unknown]
  - Duodenitis [Unknown]

NARRATIVE: CASE EVENT DATE: 20170509
